FAERS Safety Report 7316397-9 (Version None)
Quarter: 2011Q1

REPORT INFORMATION
  Report Type: 
  Country: None (occurrence: None)
  Receive Date: 20110225
  Receipt Date: 20110222
  Transmission Date: 20110831
  Serious: Yes (Other)
  Sender: FDA-Public Use
  Company Number: US-RB-019167-10

PATIENT
  Sex: Female

DRUGS (3)
  1. SUBOXONE [Suspect]
     Indication: PRODUCT USED FOR UNKNOWN INDICATION
     Dosage: DOSAGE UNKNOWN AT THIS TIME.
     Route: 065
  2. SUBOXONE [Suspect]
     Dosage: DOSING INFORMATION UNKNOWN
     Route: 065
  3. SUBOXONE [Suspect]
     Indication: PRODUCT USED FOR UNKNOWN INDICATION
     Dosage: DOSAGE INFORMATION UNKNOWN- SUBLINGUAL FILM-STATES DOSAGE BY HER DOCTOR WAS INCREASED
     Route: 065

REACTIONS (9)
  - STRESS [None]
  - INSOMNIA [None]
  - CONSTIPATION [None]
  - NASOPHARYNGITIS [None]
  - HALLUCINATION [None]
  - ARTHRALGIA [None]
  - INTENTIONAL DRUG MISUSE [None]
  - HEADACHE [None]
  - HYPOAESTHESIA [None]
